FAERS Safety Report 14840886 (Version 2)
Quarter: 2018Q2

REPORT INFORMATION
  Report Type: Spontaneous
  Country: US (occurrence: US)
  Receive Date: 20180503
  Receipt Date: 20180523
  Transmission Date: 20180711
  Serious: No
  Sender: FDA-Public Use
  Company Number: US-PFIZER INC-2018179231

PATIENT
  Age: 64 Year
  Sex: Female

DRUGS (3)
  1. XELJANZ XR [Suspect]
     Active Substance: TOFACITINIB CITRATE
     Dosage: 11 MG, DAILY (EVERY DAY)
     Route: 048
  2. XELJANZ XR [Suspect]
     Active Substance: TOFACITINIB CITRATE
     Dosage: 11 MG, UNK
     Dates: start: 2008
  3. METHOTREXATE (METHOTREXATE SODIUM) [Concomitant]
     Active Substance: METHOTREXATE SODIUM
     Dosage: UNK
     Dates: start: 2005, end: 201511

REACTIONS (4)
  - Thyroid disorder [Unknown]
  - Alopecia [Unknown]
  - Back pain [Unknown]
  - Weight increased [Unknown]

NARRATIVE: CASE EVENT DATE: 201706
